FAERS Safety Report 5215813-6 (Version None)
Quarter: 2007Q1

REPORT INFORMATION
  Report Type: 
  Country: None (occurrence: None)
  Receive Date: 20070118
  Receipt Date: 20070112
  Transmission Date: 20070707
  Serious: Yes (Hospitalization)
  Sender: FDA-Public Use
  Company Number: 228693

PATIENT
  Age: 53 Year
  Sex: Male

DRUGS (3)
  1. ERLOTINIB (ERLOTINIB) TABLET [Suspect]
     Indication: NEOPLASM MALIGNANT
     Dosage: 100 MG, QD, ORAL
     Route: 048
  2. AVASTIN [Suspect]
     Indication: NEOPLASM MALIGNANT
     Dosage: 10 MG/KG, Q2W, INTRAVENOUS
     Route: 042
     Dates: start: 20060724, end: 20060807
  3. CISPLATIN [Suspect]
     Indication: NEOPLASM MALIGNANT
     Dates: start: 20060727

REACTIONS (9)
  - BLOOD SODIUM DECREASED [None]
  - CANDIDIASIS [None]
  - DYSPHAGIA [None]
  - HAEMOGLOBIN DECREASED [None]
  - HICCUPS [None]
  - MUCOSAL INFLAMMATION [None]
  - ODYNOPHAGIA [None]
  - PHARYNGOLARYNGEAL PAIN [None]
  - PYREXIA [None]
